FAERS Safety Report 11553884 (Version 1)
Quarter: 2015Q3

REPORT INFORMATION
  Report Type: Spontaneous
  Country: IE (occurrence: IE)
  Receive Date: 20150925
  Receipt Date: 20150925
  Transmission Date: 20151125
  Serious: Yes (Disabling, Other)
  Sender: FDA-Public Use
  Company Number: IE-PFIZER INC-2015313383

PATIENT
  Age: 86 Year
  Sex: Female

DRUGS (12)
  1. VOLTAROL [Concomitant]
     Active Substance: DICLOFENAC SODIUM
  2. IDEOS [Concomitant]
     Active Substance: CALCIUM CARBONATE\CHOLECALCIFEROL
     Dosage: 2 DF, UNK
  3. LYRICA [Suspect]
     Active Substance: PREGABALIN
     Indication: PAIN
     Dosage: 50MG BD FOR FIRST 3 MONTHS
     Route: 048
     Dates: start: 20130118, end: 201304
  4. LYRICA [Suspect]
     Active Substance: PREGABALIN
     Dosage: 25MG BD FOR 15 MONTHS
     Route: 048
     Dates: start: 2014, end: 20150701
  5. PROLIA [Concomitant]
     Active Substance: DENOSUMAB
     Indication: OSTEOPOROSIS
     Dosage: 60 MG, UNK
     Route: 030
  6. ESCITALOPRAM [Concomitant]
     Active Substance: ESCITALOPRAM OXALATE
     Dosage: 5 MG, UNK
  7. PRAVASTATIN [Concomitant]
     Active Substance: PRAVASTATIN\PRAVASTATIN SODIUM
     Dosage: 20 MG, UNK
  8. BUTRANS [Concomitant]
     Active Substance: BUPRENORPHINE
     Dosage: 20 MICROGRAMS/HOUR TRANSDERMAL PATCH
     Route: 062
  9. LYRICA [Suspect]
     Active Substance: PREGABALIN
     Dosage: 25MG DAILY FOR 11 MONTHS
     Route: 048
     Dates: start: 201304, end: 201403
  10. DIOVAN [Concomitant]
     Active Substance: VALSARTAN
     Dosage: 80 MG, UNK
  11. LANSO [Concomitant]
     Dosage: 30 MG, UNK
  12. PARALIEF [Concomitant]
     Dosage: 1000 MG, 4X/DAY

REACTIONS (7)
  - Tremor [Recovering/Resolving]
  - Parkinson^s disease [Unknown]
  - Paraesthesia [Recovering/Resolving]
  - Pain in extremity [Recovering/Resolving]
  - Muscular weakness [Recovering/Resolving]
  - Emotional distress [Unknown]
  - Aphasia [Recovering/Resolving]

NARRATIVE: CASE EVENT DATE: 20150626
